FAERS Safety Report 23731681 (Version 1)
Quarter: 2024Q2

REPORT INFORMATION
  Report Type: Spontaneous
  Country: FR (occurrence: FR)
  Receive Date: 20240411
  Receipt Date: 20240411
  Transmission Date: 20240716
  Serious: Yes (Death, Hospitalization, Congenital Anomaly)
  Sender: FDA-Public Use
  Company Number: None

PATIENT

DRUGS (4)
  1. PROPRANOLOL HYDROCHLORIDE [Suspect]
     Active Substance: PROPRANOLOL HYDROCHLORIDE
     Indication: Exposure during pregnancy
     Dosage: 40 MG PER DAY
     Route: 064
     Dates: start: 20211108, end: 20220127
  2. TRANDATE [Suspect]
     Active Substance: LABETALOL HYDROCHLORIDE
     Indication: Exposure during pregnancy
     Dosage: 400 MG PER DAY
     Route: 064
     Dates: start: 20220128, end: 20220514
  3. SPIRONOLACTONE [Suspect]
     Active Substance: SPIRONOLACTONE
     Indication: Exposure during pregnancy
     Dosage: 50 MG PER DAY
     Route: 064
     Dates: start: 20211108, end: 20220127
  4. ASPIRIN DL-LYSINE [Concomitant]
     Active Substance: ASPIRIN DL-LYSINE
     Indication: Exposure during pregnancy
     Dosage: UNK
     Route: 065

REACTIONS (5)
  - Gastrointestinal malformation [Fatal]
  - Foetal growth restriction [Not Recovered/Not Resolved]
  - Dysmorphism [Not Recovered/Not Resolved]
  - Hypospadias [Not Recovered/Not Resolved]
  - Maternal exposure during pregnancy [Unknown]

NARRATIVE: CASE EVENT DATE: 20211108
